FAERS Safety Report 18145070 (Version 2)
Quarter: 2021Q3

REPORT INFORMATION
  Report Type: Spontaneous
  Country: JP (occurrence: JP)
  Receive Date: 20200813
  Receipt Date: 20210914
  Transmission Date: 20211014
  Serious: Yes (Hospitalization)
  Sender: FDA-Public Use
  Company Number: JP-ELI_LILLY_AND_COMPANY-JP202008000796

PATIENT
  Age: 62 Year
  Sex: Female
  Weight: 78 kg

DRUGS (2)
  1. LEVOTHYROXINE. [Concomitant]
     Active Substance: LEVOTHYROXINE
     Indication: GROWTH HORMONE DEFICIENCY
     Dosage: 50 UG, DAILY
     Route: 048
     Dates: start: 2018, end: 201907
  2. SOMATROPIN. [Suspect]
     Active Substance: SOMATROPIN
     Indication: GROWTH HORMONE DEFICIENCY
     Dosage: 0.5 MG, DAILY
     Route: 058

REACTIONS (2)
  - Endocrine ophthalmopathy [Recovered/Resolved]
  - Basedow^s disease [Unknown]

NARRATIVE: CASE EVENT DATE: 201807
